FAERS Safety Report 25585888 (Version 1)
Quarter: 2025Q3

REPORT INFORMATION
  Report Type: Report from Study
  Country: US (occurrence: US)
  Receive Date: 20250721
  Receipt Date: 20250721
  Transmission Date: 20251021
  Serious: Yes (Other)
  Sender: ABBVIE
  Company Number: US-ABBVIE-6170929

PATIENT
  Age: 39 Year
  Sex: Female

DRUGS (1)
  1. RINVOQ [Suspect]
     Active Substance: UPADACITINIB
     Indication: Crohn^s disease
     Route: 048
     Dates: start: 20240905

REACTIONS (7)
  - Cholelithiasis [Recovering/Resolving]
  - Muscle spasms [Recovering/Resolving]
  - Gastrointestinal disorder [Recovering/Resolving]
  - Colitis [Recovering/Resolving]
  - Escherichia urinary tract infection [Recovering/Resolving]
  - Fistula [Recovering/Resolving]
  - Constipation [Unknown]

NARRATIVE: CASE EVENT DATE: 20250303
